FAERS Safety Report 8015357-2 (Version None)
Quarter: 2011Q4

REPORT INFORMATION
  Report Type: 
  Country: None (occurrence: None)
  Receive Date: 20111230
  Receipt Date: 20111221
  Transmission Date: 20120403
  Serious: Yes (Hospitalization)
  Sender: FDA-Public Use
  Company Number: US-BAYER-2011-001050

PATIENT
  Age: 44 Year
  Sex: Female
  Weight: 65.76 kg

DRUGS (7)
  1. YASMIN [Suspect]
  2. ALBUTEROL [Concomitant]
     Dosage: UNK
     Dates: start: 20080101, end: 20080201
  3. DROSPIRENONE AND ETHINYL ESTRADIOL [Suspect]
     Indication: PREMENSTRUAL SYNDROME
  4. DROSPIRENONE AND ETHINYL ESTRADIOL [Suspect]
     Indication: CONTRACEPTION
     Dosage: UNK
     Dates: start: 20090122, end: 20091102
  5. SYNTHROID [Concomitant]
     Dosage: UNK
     Dates: start: 20080101, end: 20080301
  6. YASMIN [Suspect]
     Indication: PREMENSTRUAL SYNDROME
     Dosage: UNK
     Dates: start: 20091221, end: 20100601
  7. YASMIN [Suspect]
     Indication: CONTRACEPTION
     Dosage: UNK
     Dates: start: 20020717, end: 20081221

REACTIONS (2)
  - CHOLECYSTITIS [None]
  - CHOLELITHIASIS [None]
